FAERS Safety Report 24271450 (Version 1)
Quarter: 2024Q3

REPORT INFORMATION
  Report Type: Spontaneous
  Country: CN (occurrence: CN)
  Receive Date: 20240901
  Receipt Date: 20240901
  Transmission Date: 20241017
  Serious: Yes (Disabling)
  Sender: ORGANON
  Company Number: CN-ORGANON-O2408CHN002237

PATIENT
  Age: 66 Year
  Sex: Male

DRUGS (1)
  1. DIPROSPAN [Suspect]
     Active Substance: BETAMETHASONE DIPROPIONATE\BETAMETHASONE SODIUM PHOSPHATE
     Indication: Urticaria
     Dosage: UNK
     Route: 030

REACTIONS (2)
  - Gait inability [Not Recovered/Not Resolved]
  - Product use in unapproved indication [Unknown]
